FAERS Safety Report 13517474 (Version 1)
Quarter: 2017Q2

REPORT INFORMATION
  Report Type: Spontaneous
  Country: US (occurrence: US)
  Receive Date: 20170505
  Receipt Date: 20170505
  Transmission Date: 20170830
  Serious: Yes (Hospitalization)
  Sender: FDA-Public Use
  Company Number: None

PATIENT
  Age: 60 Year
  Sex: Male
  Weight: 86.6 kg

DRUGS (10)
  1. TOPAMAX [Concomitant]
     Active Substance: TOPIRAMATE
  2. DEXILANT [Concomitant]
     Active Substance: DEXLANSOPRAZOLE
  3. BUPROPROIN [Concomitant]
  4. DEPLIN [Concomitant]
     Active Substance: LEVOMEFOLATE CALCIUM
  5. AMBIEN CR [Concomitant]
     Active Substance: ZOLPIDEM TARTRATE
  6. CARBAMAZEPINE. [Suspect]
     Active Substance: CARBAMAZEPINE
     Indication: BIPOLAR DISORDER
     Route: 048
  7. CARBAMAZEPINE. [Suspect]
     Active Substance: CARBAMAZEPINE
     Indication: BIPOLAR DISORDER
     Route: 048
  8. LITHIUM. [Concomitant]
     Active Substance: LITHIUM
  9. NEURONTIN [Concomitant]
     Active Substance: GABAPENTIN
  10. THIAMINE. [Concomitant]
     Active Substance: THIAMINE

REACTIONS (2)
  - Accidental poisoning [None]
  - Encephalopathy [None]

NARRATIVE: CASE EVENT DATE: 20160921
